FAERS Safety Report 7056583-9 (Version None)
Quarter: 2010Q4

REPORT INFORMATION
  Report Type: 
  Country: None (occurrence: None)
  Receive Date: 20101021
  Receipt Date: 20101015
  Transmission Date: 20110411
  Serious: Yes (Other)
  Sender: FDA-Public Use
  Company Number: JP-MERCK-1010USA02367

PATIENT
  Age: 55 Year
  Sex: Male

DRUGS (3)
  1. JANUVIA [Suspect]
     Route: 048
  2. AMARYL [Concomitant]
     Route: 048
  3. METFORMIN HCL [Concomitant]
     Route: 048

REACTIONS (1)
  - HYPERGLYCAEMIA [None]
